FAERS Safety Report 9797511 (Version 3)
Quarter: 2014Q2

REPORT INFORMATION
  Report Type: Spontaneous
  Country: GB (occurrence: GB)
  Receive Date: 20140106
  Receipt Date: 20140407
  Transmission Date: 20141212
  Serious: Yes (Death, Other)
  Sender: FDA-Public Use
  Company Number: PHHY2013GB150738

PATIENT
  Age: 45 Year
  Sex: Female

DRUGS (28)
  1. CITALOPRAM [Suspect]
     Dosage: UNK
     Route: 048
  2. CITALOPRAM [Suspect]
     Dosage: 40 MG, QD
     Route: 048
  3. DIAZEPAM [Suspect]
     Dosage: 10 MG, UNK
     Route: 065
  4. GABAPENTIN [Suspect]
     Dosage: 400 MG, TID
     Route: 065
  5. OXYCONTIN [Suspect]
     Dosage: 60 MG, BID
     Route: 048
  6. OXYCONTIN [Suspect]
     Dosage: 120 MG, BID
     Route: 048
  7. OXYNORM [Suspect]
     Dosage: 20 ML/20 MG, PRN (1-2 HOURLY)
     Route: 048
  8. AMITRIPTYLINE [Concomitant]
     Dosage: 50 MG, BID
  9. XARELTO [Concomitant]
     Dosage: 20 MG, TID
  10. ANTIBIOTICS [Concomitant]
     Dosage: UNK
  11. AZATHIOPRINE [Concomitant]
     Dosage: 75 (50+25)MG, DAILY
  12. CALCICHEW D3 [Concomitant]
     Dosage: 1 DF, BID
  13. CHLORPHENAMINE [Concomitant]
     Dosage: 4 MG, QID
  14. CLENIL MODULITE [Concomitant]
     Dosage: 50 UG, UNK
     Route: 055
  15. COLCHICINE [Concomitant]
     Dosage: 500 UG,  (1.5 TABLETS DAILY)
  16. NUTRITION SUPPLEMENTS [Concomitant]
     Dosage: 1 ML, QD
  17. NUTRITION SUPPLEMENTS [Concomitant]
     Dosage: 1 ML, BID
  18. LOPERAMIDE [Concomitant]
     Dosage: 4 DF, QID
  19. OMEPRAZOLE [Concomitant]
     Dosage: 40 MG, DAILY
  20. ONDANSETRON [Concomitant]
     Dosage: 8 MG, TID
  21. OPTIVE [Concomitant]
     Dosage: 0.5 %, 1 DROP DAILY
  22. OXYBUTYNIN [Concomitant]
     Dosage: 5 MG, UNK
  23. PARACETAMOL [Concomitant]
     Dosage: 500 MG, 2 TABLETS UP TO 4 TIMES DAILY
  24. PREDNISONE [Concomitant]
     Dosage: 5 MG, BID
  25. QUININE SULFATE [Concomitant]
     Dosage: 200 MG, NOCTE
  26. REGURIN [Concomitant]
     Dosage: 60 MG, DAILY
  27. VENTOLIN [Concomitant]
     Dosage: 100 UG, BID PRN
     Route: 055
  28. ZOPICLONE [Concomitant]
     Dosage: 7.5 MG, NOCTE

REACTIONS (3)
  - Respiratory failure [Fatal]
  - Accidental overdose [Fatal]
  - Drug interaction [Unknown]
